FAERS Safety Report 23110716 (Version 1)
Quarter: 2023Q4

REPORT INFORMATION
  Report Type: Spontaneous
  Country: GB (occurrence: GB)
  Receive Date: 20231026
  Receipt Date: 20231026
  Transmission Date: 20240110
  Serious: Yes (Life-Threatening, Disabling, Other)
  Sender: FDA-Public Use
  Company Number: GB-MHRA-MED-202304061026153300-KBHSM

PATIENT
  Age: 62 Year
  Sex: Female
  Weight: 44 kg

DRUGS (1)
  1. LANSOPRAZOLE [Suspect]
     Active Substance: LANSOPRAZOLE
     Indication: Gastrooesophageal reflux disease
     Dosage: 15 MILLIGRAM, DAILY
     Route: 065

REACTIONS (2)
  - Medication error [Unknown]
  - Gastrointestinal bacterial overgrowth [Not Recovered/Not Resolved]
